FAERS Safety Report 7904998-6 (Version None)
Quarter: 2011Q4

REPORT INFORMATION
  Report Type: 
  Country: None (occurrence: None)
  Receive Date: 20111109
  Receipt Date: 20111103
  Transmission Date: 20120403
  Serious: Yes (Disabling)
  Sender: FDA-Public Use
  Company Number: PHEH2011US008627

PATIENT

DRUGS (1)
  1. TOBI [Suspect]

REACTIONS (1)
  - PSEUDOMONAS INFECTION [None]
